FAERS Safety Report 4708401-9 (Version None)
Quarter: 2005Q3

REPORT INFORMATION
  Report Type: 
  Country: None (occurrence: None)
  Receive Date: 20050707
  Receipt Date: 20050627
  Transmission Date: 20060218
  Serious: Yes (Life-Threatening, Other)
  Sender: FDA-Public Use
  Company Number: JP-JNJFOC-20050607330

PATIENT
  Sex: Male
  Weight: 50 kg

DRUGS (18)
  1. FENTANYL [Suspect]
     Route: 062
     Dates: start: 20050621, end: 20050627
  2. FENTANYL [Suspect]
     Indication: CANCER PAIN
     Route: 062
     Dates: start: 20050621, end: 20050627
  3. OPSO [Concomitant]
     Route: 065
  4. LASIX [Concomitant]
     Route: 049
  5. ALDACTONE [Concomitant]
     Route: 049
  6. ASPIRIN [Concomitant]
     Route: 049
  7. GASTER D [Concomitant]
     Indication: GASTROINTESTINAL DISORDER THERAPY
     Route: 049
  8. TENORMIN [Concomitant]
     Indication: HYPERTENSION
     Route: 049
  9. NITOROL R [Concomitant]
     Route: 049
  10. SIGMART [Concomitant]
     Route: 049
  11. WARFARIN [Concomitant]
     Route: 049
  12. KALIMATE [Concomitant]
     Route: 049
  13. MAGNESIUM OXIDE [Concomitant]
     Indication: CONSTIPATION
     Route: 049
  14. LENDORMIN [Concomitant]
     Indication: INSOMNIA
     Route: 049
  15. FERROMIA [Concomitant]
     Indication: ANAEMIA
     Route: 049
  16. LAXOBERON [Concomitant]
     Indication: CONSTIPATION
     Route: 049
  17. MORPHINE HCL ELIXIR [Concomitant]
     Indication: PAIN
     Route: 054
  18. SERENACE [Concomitant]
     Indication: INSOMNIA
     Route: 049

REACTIONS (2)
  - DELIRIUM [None]
  - RESPIRATORY FAILURE [None]
